APPROVED DRUG PRODUCT: PERMETHRIN
Active Ingredient: PERMETHRIN
Strength: 5%
Dosage Form/Route: CREAM;TOPICAL
Application: A211303 | Product #001 | TE Code: AB
Applicant: ENCUBE ETHICALS PVT LTD
Approved: Apr 3, 2019 | RLD: No | RS: No | Type: RX